FAERS Safety Report 26097958 (Version 1)
Quarter: 2025Q4

REPORT INFORMATION
  Report Type: Spontaneous
  Country: US (occurrence: US)
  Receive Date: 20251127
  Receipt Date: 20251127
  Transmission Date: 20260117
  Serious: Yes (Hospitalization, Other)
  Sender: AMGEN
  Company Number: US-AMGEN-USASP2025231021

PATIENT
  Age: 29 Year
  Sex: Female

DRUGS (11)
  1. RITUXIMAB [Suspect]
     Active Substance: RITUXIMAB
     Indication: Susac^s syndrome
     Dosage: 1000 MILLIGRAM, TWO DOSES
     Route: 065
  2. PREDNISONE [Suspect]
     Active Substance: PREDNISONE
     Indication: Susac^s syndrome
     Dosage: 60 MILLIGRAM, QD
     Route: 065
  3. PREDNISONE [Suspect]
     Active Substance: PREDNISONE
     Dosage: 30 MILLIGRAM, QD
     Route: 065
  4. ACYCLOVIR [Concomitant]
     Active Substance: ACYCLOVIR
  5. VANCOMYCIN [Concomitant]
     Active Substance: VANCOMYCIN
  6. CEFTRIAXONE [Concomitant]
     Active Substance: CEFTRIAXONE
  7. DEXAMETHASONE [Concomitant]
     Active Substance: DEXAMETHASONE
  8. ACETAZOLAMIDE [Concomitant]
     Active Substance: ACETAZOLAMIDE
  9. METHYLPREDNISOLONE [Concomitant]
     Active Substance: METHYLPREDNISOLONE
     Dosage: 1000 MILLIGRAM,  FOR 3 DAYS
     Route: 040
  10. METHYLPREDNISOLONE [Concomitant]
     Active Substance: METHYLPREDNISOLONE
     Dosage: 1000 MILLIGRAM, FOR 5 DAYS
     Route: 040
  11. CYCLOPHOSPHAMIDE [Concomitant]
     Active Substance: CYCLOPHOSPHAMIDE
     Dosage: 600 MILLIGRAM/SQ. METER, QMO
     Route: 040

REACTIONS (6)
  - Susac^s syndrome [Recovering/Resolving]
  - Osteonecrosis [Unknown]
  - Cushingoid [Unknown]
  - Weight increased [Unknown]
  - Drug ineffective for unapproved indication [Unknown]
  - Off label use [Unknown]
